FAERS Safety Report 7575741-8 (Version None)
Quarter: 2011Q2

REPORT INFORMATION
  Report Type: 
  Country: None (occurrence: None)
  Receive Date: 20110628
  Receipt Date: 20110615
  Transmission Date: 20111010
  Serious: No
  Sender: FDA-Public Use
  Company Number: US-BIOGENIDEC-2011BI018694

PATIENT
  Age: 65 Year
  Sex: Female

DRUGS (3)
  1. BENADRYL [Concomitant]
     Indication: PREMEDICATION
     Dates: start: 20110615
  2. TYSABRI [Suspect]
     Indication: MULTIPLE SCLEROSIS
     Route: 042
     Dates: start: 20110516, end: 20110615
  3. DECADRON [Concomitant]
     Indication: PREMEDICATION
     Dates: start: 20110615

REACTIONS (10)
  - MUSCULOSKELETAL PAIN [None]
  - FLUSHING [None]
  - MALAISE [None]
  - PAIN [None]
  - ASTHENIA [None]
  - CHEST DISCOMFORT [None]
  - NAUSEA [None]
  - INFUSION RELATED REACTION [None]
  - DIZZINESS [None]
  - FATIGUE [None]
